FAERS Safety Report 25497353 (Version 1)
Quarter: 2025Q3

REPORT INFORMATION
  Report Type: Report from Study
  Country: CN (occurrence: CN)
  Receive Date: 20250701
  Receipt Date: 20250701
  Transmission Date: 20251020
  Serious: Yes (Hospitalization)
  Sender: ROCHE
  Company Number: CN-ROCHE-10000157141

PATIENT
  Age: 80 Year
  Sex: Male
  Weight: 51 kg

DRUGS (29)
  1. POLATUZUMAB VEDOTIN [Suspect]
     Active Substance: POLATUZUMAB VEDOTIN
     Indication: Diffuse large B-cell lymphoma
     Route: 042
     Dates: start: 20240315, end: 20240315
  2. POLATUZUMAB VEDOTIN [Suspect]
     Active Substance: POLATUZUMAB VEDOTIN
     Route: 042
     Dates: start: 20240819, end: 20240819
  3. RITUXIMAB [Suspect]
     Active Substance: RITUXIMAB
     Indication: Diffuse large B-cell lymphoma
     Route: 042
     Dates: start: 20240315, end: 20240315
  4. RITUXIMAB [Suspect]
     Active Substance: RITUXIMAB
     Route: 042
     Dates: start: 20240819, end: 20240819
  5. CYCLOPHOSPHAMIDE [Suspect]
     Active Substance: CYCLOPHOSPHAMIDE
     Indication: Diffuse large B-cell lymphoma
     Route: 048
     Dates: start: 20240315, end: 20240329
  6. CYCLOPHOSPHAMIDE [Suspect]
     Active Substance: CYCLOPHOSPHAMIDE
     Route: 048
     Dates: start: 20240819, end: 20240819
  7. DOXORUBICIN [Suspect]
     Active Substance: DOXORUBICIN
     Indication: Diffuse large B-cell lymphoma
     Route: 042
     Dates: start: 20240315, end: 20240315
  8. DOXORUBICIN [Suspect]
     Active Substance: DOXORUBICIN
     Route: 042
     Dates: start: 20240819, end: 20240819
  9. PREDNISONE [Suspect]
     Active Substance: PREDNISONE
     Indication: Diffuse large B-cell lymphoma
     Route: 048
     Dates: start: 20240315, end: 20240319
  10. PREDNISONE [Suspect]
     Active Substance: PREDNISONE
     Route: 048
     Dates: start: 20240819, end: 20240823
  11. ENTECAVIR [Concomitant]
     Active Substance: ENTECAVIR
     Route: 048
     Dates: start: 20240222
  12. FEBUXOSTAT [Concomitant]
     Active Substance: FEBUXOSTAT
     Route: 048
     Dates: start: 20240222
  13. Calcium Acetate Capsules [Concomitant]
     Route: 048
     Dates: start: 20240222
  14. Lansoprazole Enteric-coated Tablets [Concomitant]
     Route: 048
     Dates: start: 20240222
  15. ASPIRIN [Concomitant]
     Active Substance: ASPIRIN
     Route: 048
     Dates: start: 20240319
  16. Sodium Houttuyfonate [Concomitant]
     Route: 058
     Dates: start: 20240417
  17. Ondansetron Oral Soluble Pellicles [Concomitant]
     Route: 048
     Dates: start: 20240515
  18. BISOPROLOL FUMARATE [Concomitant]
     Active Substance: BISOPROLOL FUMARATE
     Route: 048
     Dates: start: 20240625
  19. ATORVASTATIN CALCIUM [Concomitant]
     Active Substance: ATORVASTATIN CALCIUM
     Route: 048
     Dates: start: 20240625
  20. PROMETHAZINE [Concomitant]
     Active Substance: PROMETHAZINE HYDROCHLORIDE
     Route: 030
     Dates: start: 20240819, end: 20240819
  21. DEXRAZOXANE [Concomitant]
     Active Substance: DEXRAZOXANE
     Route: 042
     Dates: start: 20240819, end: 20240819
  22. PEGylated Recombinant Human Granulocyte Colony-Stimulating Factor Inje [Concomitant]
     Route: 055
     Dates: start: 20240819, end: 20240819
  23. Thymalfasin for Injection [Concomitant]
     Route: 058
     Dates: start: 20240819
  24. Thymalfasin for Injection [Concomitant]
     Route: 058
     Dates: start: 20240916, end: 20240927
  25. omeprazole sodium for injection [Concomitant]
     Route: 042
     Dates: start: 20240910, end: 20240929
  26. SODIUM BICARBONATE [Concomitant]
     Active Substance: SODIUM BICARBONATE
     Route: 048
     Dates: start: 20240927, end: 20240929
  27. Nifedipine Tablets [Concomitant]
     Route: 048
     Dates: start: 20240911, end: 20240911
  28. Bifid Triple Viable Capsules Dissolving at Intestines [Concomitant]
     Route: 048
     Dates: start: 20240929, end: 20241013
  29. Dexamethasone Sodium Phosphate inj [Concomitant]
     Route: 042
     Dates: start: 20240819, end: 20240819

REACTIONS (1)
  - Pneumonia bacterial [Recovered/Resolved]

NARRATIVE: CASE EVENT DATE: 20240910
